FAERS Safety Report 5689118-3 (Version None)
Quarter: 2008Q1

REPORT INFORMATION
  Report Type: 
  Country: None (occurrence: None)
  Receive Date: 20080331
  Receipt Date: 19860618
  Transmission Date: 20080703
  Serious: Yes (Death, Hospitalization, Other)
  Sender: FDA-Public Use
  Company Number: NO-ROCHE-860102171001

PATIENT
  Age: 66 Year
  Sex: Male

DRUGS (17)
  1. FLUMAZENIL [Suspect]
     Indication: COMA
     Route: 042
     Dates: start: 19860616, end: 19860616
  2. FLUMAZENIL [Suspect]
     Route: 042
     Dates: start: 19860617, end: 19860617
  3. MIDAZOLAM HCL [Suspect]
     Route: 042
     Dates: start: 19860615, end: 19860616
  4. MORPHINE [Suspect]
     Route: 008
     Dates: start: 19860610, end: 19860612
  5. MORPHINE [Suspect]
     Route: 008
     Dates: start: 19860613, end: 19860614
  6. HALOPERIDOL [Suspect]
     Route: 042
     Dates: start: 19860614, end: 19860615
  7. DIAZEPAM [Suspect]
     Indication: DRUG USE FOR UNKNOWN INDICATION
     Route: 042
     Dates: start: 19860610, end: 19860610
  8. DIAZEPAM [Suspect]
     Route: 042
     Dates: start: 19860612, end: 19860612
  9. KETOGAN [Concomitant]
     Route: 030
     Dates: start: 19860610, end: 19860610
  10. KETOGAN [Concomitant]
     Route: 030
     Dates: start: 19860615, end: 19860615
  11. DIGITOXIN INJ [Concomitant]
     Indication: ATRIAL FLUTTER
     Route: 065
  12. ALDOMET [Concomitant]
     Indication: HYPERTENSION
     Route: 065
  13. KETOGAN [Concomitant]
     Route: 042
     Dates: start: 19860610, end: 19860610
  14. KETOGAN [Concomitant]
     Route: 042
     Dates: start: 19860611, end: 19860611
  15. KETOGAN [Concomitant]
     Route: 042
     Dates: start: 19860615, end: 19860615
  16. FENTANYL + MARCAIN [Concomitant]
     Route: 008
     Dates: start: 19860609, end: 19860609
  17. FENTANYL + MARCAIN [Concomitant]
     Route: 008
     Dates: start: 19860610, end: 19860610

REACTIONS (4)
  - COMA [None]
  - DEATH [None]
  - HYPOXIA [None]
  - PULMONARY EMBOLISM [None]
